FAERS Safety Report 5586403-0 (Version None)
Quarter: 2008Q1

REPORT INFORMATION
  Report Type: 
  Country: None (occurrence: None)
  Receive Date: 20080107
  Receipt Date: 20080107
  Transmission Date: 20080703
  Serious: Yes (Death)
  Sender: FDA-Public Use
  Company Number: None

PATIENT
  Sex: Female
  Weight: 65.318 kg

DRUGS (3)
  1. HUMIRA [Suspect]
     Indication: RHEUMATOID ARTHRITIS
     Dosage: 40 MG SQ Q2 WEEKS
     Dates: start: 20070316, end: 20071110
  2. ARAVA [Suspect]
     Indication: RHEUMATOID ARTHRITIS
     Dosage: 20 MG PO QD
     Route: 048
     Dates: start: 20070426, end: 20071110
  3. PREDNISONE TAB [Concomitant]

REACTIONS (9)
  - ABDOMINAL DISCOMFORT [None]
  - ACUTE RESPIRATORY DISTRESS SYNDROME [None]
  - AUTOIMMUNE DISORDER [None]
  - CONDITION AGGRAVATED [None]
  - EMBOLISM [None]
  - NO THERAPEUTIC RESPONSE [None]
  - PNEUMONIA [None]
  - PULMONARY FIBROSIS [None]
  - RHEUMATOID ARTHRITIS [None]
